FAERS Safety Report 23421699 (Version 1)
Quarter: 2024Q1

REPORT INFORMATION
  Report Type: Other
  Country: US (occurrence: None)
  Receive Date: 20240119
  Receipt Date: 20240119
  Transmission Date: 20240410
  Serious: Yes (Hospitalization)
  Sender: FDA-Public Use
  Company Number: US-ROCHE-3494395

PATIENT
  Age: 68 Year
  Sex: Male

DRUGS (1)
  1. ALECENSA [Suspect]
     Active Substance: ALECTINIB HYDROCHLORIDE
     Indication: Lung neoplasm malignant
     Dosage: TOOK 4 CAPSULES BY MOUTH TWICE A DAY
     Route: 048

REACTIONS (2)
  - Hepatic neoplasm [Unknown]
  - Bronchitis [Unknown]
